FAERS Safety Report 6083907-1 (Version None)
Quarter: 2009Q1

REPORT INFORMATION
  Report Type: 
  Country: None (occurrence: None)
  Receive Date: 20090217
  Receipt Date: 20090217
  Transmission Date: 20090719
  Serious: No
  Sender: FDA-Public Use
  Company Number: None

PATIENT
  Age: 66 Year
  Sex: Female
  Weight: 69.8539 kg

DRUGS (1)
  1. ALENDRONATE SODIUM [Suspect]
     Indication: OSTEOPOROSIS
     Dosage: 70MG QWEEK PO
     Route: 048
     Dates: start: 20080801, end: 20080901

REACTIONS (6)
  - ARTHRALGIA [None]
  - BACK PAIN [None]
  - HEADACHE [None]
  - HEART RATE ABNORMAL [None]
  - JOINT SWELLING [None]
  - RASH [None]
